FAERS Safety Report 6266758-4 (Version None)
Quarter: 2009Q3

REPORT INFORMATION
  Report Type: 
  Country: None (occurrence: None)
  Receive Date: 20090710
  Receipt Date: 20090710
  Transmission Date: 20100115
  Serious: Yes (Death, Life-Threatening, Hospitalization)
  Sender: FDA-Public Use
  Company Number: None

PATIENT
  Age: 49 Year
  Sex: Male

DRUGS (8)
  1. AUTOLOGOUS INKT CELLS [Suspect]
     Indication: MALIGNANT MELANOMA
     Dosage: IV
     Route: 042
     Dates: start: 20090521
  2. AUTOLOGOUS INKT CELLS [Suspect]
     Indication: MALIGNANT MELANOMA
     Dosage: IV
     Route: 042
     Dates: start: 20090604
  3. AUTOLOGOUS INKT CELLS [Suspect]
     Indication: MALIGNANT MELANOMA
     Dosage: IV
     Route: 042
     Dates: start: 20090618
  4. GMCSF [Suspect]
     Indication: MALIGNANT MELANOMA
     Dosage: 250MCG/M2/DAY SC INJECT
     Route: 058
     Dates: start: 20090604, end: 20090613
  5. GMCSF [Suspect]
     Indication: MALIGNANT MELANOMA
     Dosage: 250MCG/M2/DAY SC INJECT
     Route: 058
     Dates: start: 20090618, end: 20090627
  6. HERBAL YEAST SUPPLEMENT [Concomitant]
  7. ASCORBIC ACID [Concomitant]
  8. LOPRESSOR [Concomitant]

REACTIONS (14)
  - ABDOMINAL DISTENSION [None]
  - ARTHRALGIA [None]
  - HYPERHIDROSIS [None]
  - LUNG DISORDER [None]
  - LYMPHADENOPATHY [None]
  - METASTASES TO SPLEEN [None]
  - MUSCULOSKELETAL PAIN [None]
  - MYALGIA [None]
  - PORTAL VEIN THROMBOSIS [None]
  - RADICULAR PAIN [None]
  - RENAL FAILURE ACUTE [None]
  - RENAL TUBULAR NECROSIS [None]
  - SPINAL OSTEOARTHRITIS [None]
  - TUMOUR LYSIS SYNDROME [None]
